FAERS Safety Report 19876717 (Version 1)
Quarter: 2021Q3

REPORT INFORMATION
  Report Type: Spontaneous
  Country: CA (occurrence: CA)
  Receive Date: 20210924
  Receipt Date: 20210924
  Transmission Date: 20211014
  Serious: Yes (Death)
  Sender: FDA-Public Use
  Company Number: CA-TEVA-2021-CA-1956201

PATIENT
  Age: 37 Year
  Sex: Male
  Weight: 98 kg

DRUGS (2)
  1. FENTANYL. [Suspect]
     Active Substance: FENTANYL
     Route: 065
  2. METHAMPHETAMINE [Suspect]
     Active Substance: METHAMPHETAMINE
     Route: 065

REACTIONS (4)
  - Postmortem blood drug level increased [Fatal]
  - Opiates positive [Fatal]
  - Amphetamines positive [Fatal]
  - Toxicity to various agents [Fatal]
